FAERS Safety Report 9530893 (Version 1)
Quarter: 2013Q3

REPORT INFORMATION
  Report Type: Spontaneous
  Country: US (occurrence: None)
  Receive Date: 20130916
  Receipt Date: 20130916
  Transmission Date: 20140515
  Serious: No
  Sender: FDA-Public Use
  Company Number: None

PATIENT
  Age: 62 None
  Sex: Male

DRUGS (1)
  1. AFINITOR 5MG NOVARTIS [Suspect]
     Indication: RENAL CANCER
     Route: 048
     Dates: start: 20130602, end: 20130913

REACTIONS (1)
  - Oral disorder [None]
